FAERS Safety Report 8921547 (Version 1)
Quarter: 2012Q4

REPORT INFORMATION
  Report Type: 
  Country: JP (occurrence: JP)
  Receive Date: 20121121
  Receipt Date: 20121121
  Transmission Date: 20130627
  Serious: Yes (Other)
  Sender: FDA-Public Use
  Company Number: JP-ROCHE-243506

PATIENT
  Age: 62 Year
  Sex: Female

DRUGS (7)
  1. ROCEPHIN [Suspect]
     Indication: PYREXIA
     Route: 041
  2. ALEVIATIN [Suspect]
     Indication: EPILEPSY
     Route: 041
     Dates: start: 20000813, end: 20000822
  3. GLYCEROL [Concomitant]
     Indication: CEREBRAL HAEMORRHAGE
     Route: 041
     Dates: start: 20000813, end: 20000830
  4. BISOLVON [Concomitant]
     Indication: PRODUCTIVE COUGH
     Route: 042
     Dates: start: 20000814, end: 20000831
  5. NICHOLIN [Concomitant]
     Indication: CEREBRAL HAEMORRHAGE
     Route: 041
     Dates: start: 20000813, end: 20000906
  6. LUCIDRIL [Concomitant]
     Indication: CEREBRAL HAEMORRHAGE
     Route: 041
     Dates: start: 20000813, end: 20000906
  7. SOLCOSERYL [Concomitant]
     Indication: CEREBRAL HAEMORRHAGE
     Route: 041
     Dates: start: 20000813, end: 20000906

REACTIONS (1)
  - Liver injury [Recovered/Resolved]
